FAERS Safety Report 13704913 (Version 1)
Quarter: 2017Q2

REPORT INFORMATION
  Report Type: Spontaneous
  Country: US (occurrence: US)
  Receive Date: 20170629
  Receipt Date: 20170629
  Transmission Date: 20170830
  Serious: Yes (Other)
  Sender: FDA-Public Use
  Company Number: None

PATIENT
  Sex: Male

DRUGS (1)
  1. SUTENT [Suspect]
     Active Substance: SUNITINIB MALATE
     Indication: NEOPLASM MALIGNANT
     Dosage: 37.5MG DAILY FOR 21 DAYS ON AND 7 DAYS OFF ORALLY??FROM 11/08/2017 TO CURRENT
     Route: 048

REACTIONS (1)
  - Diarrhoea [None]
